FAERS Safety Report 5143084-8 (Version None)
Quarter: 2006Q4

REPORT INFORMATION
  Report Type: 
  Country: None (occurrence: None)
  Receive Date: 20061101
  Receipt Date: 20061101
  Transmission Date: 20070319
  Serious: No
  Sender: FDA-Public Use
  Company Number: None

PATIENT
  Sex: Female
  Weight: 45 kg

DRUGS (3)
  1. CISPLATIN [Suspect]
     Dosage: 65 MG
  2. DOXORUBICIN HYDROCHLORIDE [Suspect]
     Dosage: 58 MG
  3. TAXOL [Suspect]
     Dosage: 208 MG

REACTIONS (1)
  - NEUTROPENIA [None]
